FAERS Safety Report 5955457-1 (Version None)
Quarter: 2008Q4

REPORT INFORMATION
  Report Type: 
  Country: None (occurrence: None)
  Receive Date: 20081113
  Receipt Date: 20081113
  Transmission Date: 20090506
  Serious: Yes (Hospitalization)
  Sender: FDA-Public Use
  Company Number: None

PATIENT
  Age: 84 Year
  Sex: Male
  Weight: 71.9 kg

DRUGS (2)
  1. CLOPIDOGREL [Suspect]
     Indication: CORONARY ARTERY DISEASE
     Dosage: 75 MG EVERY DAY PO
     Route: 048
     Dates: start: 20081012, end: 20081019
  2. HEPARIN [Suspect]
     Dosage: 5000 UNITS TID SQ
     Route: 058
     Dates: start: 20081018, end: 20081019

REACTIONS (7)
  - COUGH [None]
  - HAEMOPTYSIS [None]
  - LOBAR PNEUMONIA [None]
  - PLEURITIC PAIN [None]
  - PULMONARY ALVEOLAR HAEMORRHAGE [None]
  - PULMONARY EMBOLISM [None]
  - WHITE BLOOD CELL COUNT INCREASED [None]
